FAERS Safety Report 8932184 (Version 2)
Quarter: 2012Q4

REPORT INFORMATION
  Report Type: Report from Study
  Country: US (occurrence: US)
  Receive Date: 20121128
  Receipt Date: 20121204
  Transmission Date: 20130627
  Serious: Yes (Hospitalization, Other)
  Sender: FDA-Public Use
  Company Number: US-ABBOTT-12P-163-1012859-00

PATIENT
  Age: 39 Year
  Sex: Male
  Weight: 59.93 kg

DRUGS (4)
  1. HUMIRA [Suspect]
     Indication: CROHN^S DISEASE
     Dates: start: 201207
  2. HUMIRA [Suspect]
     Dates: start: 20121117
  3. MULTIVITAMIN [Concomitant]
     Indication: PRODUCT USED FOR UNKNOWN INDICATION
     Dosage: Daily
  4. PREDNISONE [Concomitant]
     Indication: PRODUCT USED FOR UNKNOWN INDICATION
     Dosage: Taper
     Dates: start: 20121120

REACTIONS (7)
  - Hospitalisation [Not Recovered/Not Resolved]
  - Weight decreased [Not Recovered/Not Resolved]
  - Escherichia urinary tract infection [Unknown]
  - Pyrexia [Unknown]
  - Portal vein thrombosis [Unknown]
  - Drug ineffective [Unknown]
  - Crohn^s disease [Unknown]
